FAERS Safety Report 4983680-1 (Version None)
Quarter: 2006Q1

REPORT INFORMATION
  Report Type: 
  Country: None (occurrence: None)
  Receive Date: 20060227
  Receipt Date: 20050120
  Transmission Date: 20060701
  Serious: Yes (Life-Threatening, Hospitalization, Other)
  Sender: FDA-Public Use
  Company Number: WAES 0501USA03188

PATIENT
  Age: 61 Year
  Sex: Male
  Weight: 57.1532 kg

DRUGS (5)
  1. ZOCOR [Suspect]
     Indication: HYPERLIPIDAEMIA
     Dosage: SEE IMAGE
     Route: 048
     Dates: start: 20041216, end: 20041231
  2. AMARYL [Concomitant]
  3. GLUCOPHAGE [Concomitant]
  4. PLAVIX [Concomitant]
  5. ASPIRIN [Concomitant]

REACTIONS (2)
  - ADVERSE EVENT [None]
  - RHABDOMYOLYSIS [None]
